FAERS Safety Report 8168527-7 (Version None)
Quarter: 2012Q1

REPORT INFORMATION
  Report Type: 
  Country: None (occurrence: None)
  Receive Date: 20120227
  Receipt Date: 20120227
  Transmission Date: 20120608
  Serious: Yes (Life-Threatening, Hospitalization, Other)
  Sender: FDA-Public Use
  Company Number: None

PATIENT
  Age: 45 Year
  Sex: Female
  Weight: 109.76 kg

DRUGS (1)
  1. REMICADE [Suspect]
     Indication: PSORIASIS
     Dosage: 1 X WEEK , TO 1 EVERY 4 WEELTO
     Route: 041
     Dates: start: 20110405, end: 20110516

REACTIONS (6)
  - IMMUNE SYSTEM DISORDER [None]
  - BACTERIAL INFECTION [None]
  - LUNG NEOPLASM [None]
  - PNEUMONIA NECROTISING [None]
  - COUGH [None]
  - SKIN ULCER [None]
